FAERS Safety Report 4663452-8 (Version None)
Quarter: 2005Q2

REPORT INFORMATION
  Report Type: 
  Country: None (occurrence: None)
  Receive Date: 20050511
  Receipt Date: 20050118
  Transmission Date: 20051028
  Serious: Yes (Other)
  Sender: FDA-Public Use
  Company Number: 392954

PATIENT
  Age: 50 Year
  Sex: Male

DRUGS (2)
  1. PEGASYS [Suspect]
     Indication: DRUG USE FOR UNKNOWN INDICATION
     Dosage: OTHER
     Dates: start: 20041217
  2. COPEGUS [Suspect]
     Indication: DRUG USE FOR UNKNOWN INDICATION
     Dosage: ORAL
     Route: 048
     Dates: start: 20041217

REACTIONS (5)
  - FEELING ABNORMAL [None]
  - FLIGHT OF IDEAS [None]
  - MALAISE [None]
  - SELF-INJURIOUS IDEATION [None]
  - SUICIDAL IDEATION [None]
